FAERS Safety Report 8347481-9 (Version None)
Quarter: 2012Q2

REPORT INFORMATION
  Report Type: 
  Country: None (occurrence: None)
  Receive Date: 20120509
  Receipt Date: 20120503
  Transmission Date: 20120825
  Serious: Yes (Hospitalization, Other)
  Sender: FDA-Public Use
  Company Number: US-NOVOPROD-341228

PATIENT
  Age: 54 Year
  Sex: Female
  Weight: 88.435 kg

DRUGS (2)
  1. NOVOLOG [Suspect]
     Indication: TYPE 2 DIABETES MELLITUS
     Dosage: UNK UNK, TID
     Route: 058
     Dates: start: 20010101
  2. PREDNISONE TAB [Concomitant]
     Indication: PRODUCT USED FOR UNKNOWN INDICATION

REACTIONS (5)
  - IMPAIRED GASTRIC EMPTYING [None]
  - PERITONITIS [None]
  - DEVICE MALFUNCTION [None]
  - MALNUTRITION [None]
  - BLOOD GLUCOSE INCREASED [None]
